FAERS Safety Report 7145938-X (Version None)
Quarter: 2010Q4

REPORT INFORMATION
  Report Type: 
  Country: None (occurrence: None)
  Receive Date: 20101208
  Receipt Date: 20100422
  Transmission Date: 20110411
  Serious: No
  Sender: FDA-Public Use
  Company Number: US-ABBOTT-10P-163-0641329-00

PATIENT
  Sex: Male
  Weight: 89.438 kg

DRUGS (15)
  1. ERYPED [Suspect]
     Indication: GASTRIC DISORDER
     Dosage: 400 MG/5ML TAKE 2.5CC
     Dates: start: 20100421
  2. NEXIUM [Concomitant]
     Indication: PRODUCT USED FOR UNKNOWN INDICATION
  3. COZAAR [Concomitant]
     Indication: PRODUCT USED FOR UNKNOWN INDICATION
  4. TOPRAL [Concomitant]
     Indication: PRODUCT USED FOR UNKNOWN INDICATION
     Dosage: 50MG IN AM ; 25MG @ HS
  5. AMARYL [Concomitant]
     Indication: DIABETES MELLITUS
  6. LIPITOR [Concomitant]
     Indication: PRODUCT USED FOR UNKNOWN INDICATION
  7. LORAZEPAM [Concomitant]
     Indication: PRODUCT USED FOR UNKNOWN INDICATION
  8. AMBIEN [Concomitant]
     Indication: INSOMNIA
  9. FAMOTIDINE [Concomitant]
     Indication: PRODUCT USED FOR UNKNOWN INDICATION
  10. DIGEST GOLD [Concomitant]
     Indication: PRODUCT USED FOR UNKNOWN INDICATION
  11. ZERTEC OTC [Concomitant]
     Indication: PRODUCT USED FOR UNKNOWN INDICATION
  12. ASPIRIN [Concomitant]
     Indication: PRODUCT USED FOR UNKNOWN INDICATION
  13. M.V.I. [Concomitant]
     Indication: PRODUCT USED FOR UNKNOWN INDICATION
  14. ESTER C [Concomitant]
     Indication: PRODUCT USED FOR UNKNOWN INDICATION
  15. COLACE [Concomitant]
     Indication: PRODUCT USED FOR UNKNOWN INDICATION

REACTIONS (1)
  - BLOOD GLUCOSE INCREASED [None]
